FAERS Safety Report 5927360-4 (Version None)
Quarter: 2008Q4

REPORT INFORMATION
  Report Type: 
  Country: None (occurrence: None)
  Receive Date: 20081021
  Receipt Date: 20081007
  Transmission Date: 20090506
  Serious: Yes (Hospitalization)
  Sender: FDA-Public Use
  Company Number: 2008S1018193

PATIENT
  Age: 4 Year
  Sex: Male
  Weight: 17.2367 kg

DRUGS (2)
  1. ALBUTEROL SULATE [Suspect]
     Indication: ASTHMA
     Dosage: AS NEEDED; INHALATION
     Route: 055
     Dates: start: 20040101, end: 20081006
  2. FLOVENT [Concomitant]

REACTIONS (3)
  - DRUG HYPERSENSITIVITY [None]
  - DRUG INEFFECTIVE [None]
  - DYSPNOEA [None]
